FAERS Safety Report 6504696-X (Version None)
Quarter: 2009Q4

REPORT INFORMATION
  Report Type: 
  Country: None (occurrence: None)
  Receive Date: 20091215
  Receipt Date: 20091204
  Transmission Date: 20100525
  Serious: Yes (Hospitalization)
  Sender: FDA-Public Use
  Company Number: 2009SP003249

PATIENT
  Age: 86 Year
  Sex: Male
  Weight: 79.4 kg

DRUGS (3)
  1. LUNESTA [Suspect]
     Indication: INSOMNIA
     Dosage: 3  MG;HS;ORAL
     Route: 048
     Dates: start: 20090101
  2. ASACOL [Concomitant]
  3. AMBIEN [Concomitant]

REACTIONS (5)
  - COLITIS [None]
  - CONDITION AGGRAVATED [None]
  - HAEMORRHAGE [None]
  - HALLUCINATION [None]
  - MIDDLE INSOMNIA [None]
